FAERS Safety Report 13567217 (Version 1)
Quarter: 2017Q2

REPORT INFORMATION
  Report Type: Spontaneous
  Country: US (occurrence: US)
  Receive Date: 20170522
  Receipt Date: 20170522
  Transmission Date: 20170830
  Serious: Yes (Other)
  Sender: FDA-Public Use
  Company Number: None

PATIENT
  Age: 53 Year
  Sex: Female
  Weight: 90 kg

DRUGS (7)
  1. SEROGUEL [Concomitant]
  2. LAMOTRIGINE 200MG TABLETS (ZYDUS) [Suspect]
     Active Substance: LAMOTRIGINE
     Indication: AFFECTIVE DISORDER
     Dosage: ?          QUANTITY:1 TABLET(S);?
     Route: 048
     Dates: start: 20170506, end: 20170519
  3. TUMS [Concomitant]
     Active Substance: CALCIUM CARBONATE
  4. ADDERALL [Concomitant]
     Active Substance: AMPHETAMINE ASPARTATE\AMPHETAMINE SULFATE\DEXTROAMPHETAMINE SACCHARATE\DEXTROAMPHETAMINE SULFATE
  5. XANAX [Concomitant]
     Active Substance: ALPRAZOLAM
  6. ALEVE [Concomitant]
     Active Substance: NAPROXEN SODIUM
  7. SUDAFED ALLERGY/DECONGESTANT [Concomitant]

REACTIONS (13)
  - Withdrawal syndrome [None]
  - Euphoric mood [None]
  - Crying [None]
  - Insomnia [None]
  - Panic reaction [None]
  - Alopecia [None]
  - Anxiety [None]
  - Influenza like illness [None]
  - Nausea [None]
  - Irritability [None]
  - Hypomania [None]
  - Headache [None]
  - Agitation [None]

NARRATIVE: CASE EVENT DATE: 20170521
